FAERS Safety Report 10641463 (Version 2)
Quarter: 2015Q1

REPORT INFORMATION
  Report Type: Spontaneous
  Country: FR (occurrence: FR)
  Receive Date: 20141209
  Receipt Date: 20150107
  Transmission Date: 20150720
  Serious: Yes (Hospitalization)
  Sender: FDA-Public Use
  Company Number: FR-PFIZER INC-2014335085

PATIENT
  Age: 40 Year
  Sex: Female

DRUGS (2)
  1. TERCIAN [Suspect]
     Active Substance: CYAMEMAZINE
     Dosage: 25 MG, 1X/DAY
     Dates: end: 20140605
  2. CYTOTEC [Suspect]
     Active Substance: MISOPROSTOL
     Indication: ABORTION INDUCED
     Dosage: 800 MG, SINGLE
     Dates: start: 201406, end: 201406

REACTIONS (2)
  - Amniorrhoea [Unknown]
  - Drug ineffective for unapproved indication [Unknown]

NARRATIVE: CASE EVENT DATE: 201406
